FAERS Safety Report 7897188-7 (Version None)
Quarter: 2011Q4

REPORT INFORMATION
  Report Type: 
  Country: None (occurrence: None)
  Receive Date: 20111107
  Receipt Date: 20111024
  Transmission Date: 20120403
  Serious: Yes (Hospitalization, Other)
  Sender: FDA-Public Use
  Company Number: US-ELI_LILLY_AND_COMPANY-US201110007065

PATIENT
  Sex: Female

DRUGS (5)
  1. CYMBALTA [Suspect]
     Indication: PAIN
     Dosage: 90 MG, QD
     Dates: start: 20110401, end: 20110906
  2. CYMBALTA [Suspect]
     Dosage: 30 MG, QD
     Dates: start: 20110915, end: 20110915
  3. CYMBALTA [Suspect]
     Dosage: 60 MG, QD
     Dates: start: 20110915, end: 20111013
  4. CYMBALTA [Suspect]
     Dosage: 30 MG, QD
     Dates: start: 20111014, end: 20111021
  5. CYMBALTA [Suspect]
     Dosage: 60 MG, QD
     Dates: start: 20110907, end: 20110914

REACTIONS (10)
  - TINNITUS [None]
  - NIGHT SWEATS [None]
  - DECREASED APPETITE [None]
  - WEIGHT DECREASED [None]
  - DRUG WITHDRAWAL SYNDROME [None]
  - MIGRAINE [None]
  - MUSCLE ATROPHY [None]
  - COLD SWEAT [None]
  - MEMORY IMPAIRMENT [None]
  - INFLUENZA LIKE ILLNESS [None]
